FAERS Safety Report 23108785 (Version 1)
Quarter: 2023Q4

REPORT INFORMATION
  Report Type: Spontaneous
  Country: US (occurrence: None)
  Receive Date: 20231024
  Receipt Date: 20231024
  Transmission Date: 20240110
  Serious: Yes (Hospitalization)
  Sender: FDA-Public Use
  Company Number: None

PATIENT
  Age: 75 Year
  Sex: Male
  Weight: 108 kg

DRUGS (1)
  1. FUROSEMIDE [Suspect]
     Active Substance: FUROSEMIDE
     Dosage: FREQUENCY : TWICE A DAY;?
     Route: 048
     Dates: start: 20210512, end: 20210801

REACTIONS (4)
  - Dizziness postural [None]
  - Hypotension [None]
  - Presyncope [None]
  - Therapy change [None]

NARRATIVE: CASE EVENT DATE: 20210821
